FAERS Safety Report 13568502 (Version 1)
Quarter: 2017Q2

REPORT INFORMATION
  Report Type: Spontaneous
  Country: US (occurrence: US)
  Receive Date: 20170522
  Receipt Date: 20170522
  Transmission Date: 20170830
  Serious: Yes (Death)
  Sender: FDA-Public Use
  Company Number: US-SA-2017SA090610

PATIENT
  Age: 51 Year
  Sex: Male

DRUGS (1)
  1. XYZAL ALLERGY 24HR [Suspect]
     Active Substance: LEVOCETIRIZINE DIHYDROCHLORIDE
     Indication: MULTIPLE ALLERGIES
     Dosage: START DATE 2 WEEKS AGO
     Route: 065
     Dates: end: 20170508

REACTIONS (2)
  - Fatigue [Unknown]
  - Completed suicide [Fatal]

NARRATIVE: CASE EVENT DATE: 20170509
